FAERS Safety Report 8496761-5 (Version None)
Quarter: 2012Q3

REPORT INFORMATION
  Report Type: 
  Country: None (occurrence: None)
  Receive Date: 20120709
  Receipt Date: 20120627
  Transmission Date: 20120928
  Serious: Yes (Life-Threatening)
  Sender: FDA-Public Use
  Company Number: SE-ROCHE-1082786

PATIENT
  Sex: Female

DRUGS (6)
  1. ENALAPRIL MALEATE [Concomitant]
     Indication: HYPERTENSION
  2. LEVOTHYROXINE SODIUM [Concomitant]
     Indication: HYPOTHYROIDISM
  3. ACTIVASE [Suspect]
     Indication: ISCHAEMIC STROKE
     Route: 042
     Dates: start: 20120609, end: 20120609
  4. LOSARTAN POTASSIUM [Concomitant]
     Indication: HYPERTENSION
  5. METFORMIN HCL [Concomitant]
     Indication: DIABETES MELLITUS
  6. ATENOLOL [Concomitant]
     Indication: HYPERTENSION

REACTIONS (4)
  - HYPERSENSITIVITY [None]
  - SWOLLEN TONGUE [None]
  - OXYGEN SATURATION ABNORMAL [None]
  - RESPIRATORY RATE DECREASED [None]
